FAERS Safety Report 19173416 (Version 10)
Quarter: 2022Q1

REPORT INFORMATION
  Report Type: Report from Study
  Country: NL (occurrence: None)
  Receive Date: 20210423
  Receipt Date: 20220307
  Transmission Date: 20220423
  Serious: Yes (Hospitalization)
  Sender: FDA-Public Use
  Company Number: NL-ROCHE-2778637

PATIENT
  Age: 71 Year
  Sex: Female
  Weight: 73.65 kg

DRUGS (13)
  1. PLACEBO [Suspect]
     Active Substance: UNSPECIFIED INGREDIENT
     Indication: Small cell lung cancer extensive stage
     Dosage: ON 08/FEB/2021, SHE RECEIVED MOST RECENT DOSE OF PLACEBO PRIOR TO ADVERSE EVENT.
     Route: 042
     Dates: start: 20200902
  2. CARBOPLATIN [Suspect]
     Active Substance: CARBOPLATIN
     Indication: Small cell lung cancer extensive stage
     Dosage: ON 19/NOV/2020, SHE RECEIVED MOST RECENT DOSE OF CARBOPLATIN 450 MG PRIOR TO ADVERSE EVENT.
     Route: 042
     Dates: start: 20200902
  3. ETOPOSIDE [Suspect]
     Active Substance: ETOPOSIDE
     Indication: Small cell lung cancer extensive stage
     Dosage: DAYS 1, 2 AND 3 OF EACH 21-DAY CYCLE FOR 4 CYCLES. ?ON 21/NOV/2020, SHE RECEIVED MOST RECENT DOSE OF
     Route: 042
     Dates: start: 20200902
  4. ATEZOLIZUMAB [Suspect]
     Active Substance: ATEZOLIZUMAB
     Indication: Small cell lung cancer extensive stage
     Route: 041
     Dates: start: 20200902
  5. PREDNISOLONE [Concomitant]
     Active Substance: PREDNISOLONE
     Route: 048
     Dates: start: 20210301, end: 20210310
  6. CEFUROXIME [Concomitant]
     Active Substance: CEFUROXIME
     Indication: C-reactive protein increased
     Route: 042
     Dates: start: 20210228, end: 20210305
  7. PROBIOTICS NOS [Concomitant]
     Active Substance: PROBIOTICS NOS
     Indication: Prophylaxis
     Route: 048
     Dates: end: 20210907
  8. ACETAMINOPHEN [Concomitant]
     Active Substance: ACETAMINOPHEN
     Indication: Pain
     Route: 048
     Dates: start: 20200821, end: 20210907
  9. LEVOTHYROXINE [Concomitant]
     Active Substance: LEVOTHYROXINE
     Route: 048
     Dates: start: 1996, end: 20210907
  10. OXYCODONE [Concomitant]
     Active Substance: OXYCODONE
     Indication: Pain
     Route: 048
     Dates: start: 20200821, end: 20210907
  11. CHOLECALCIFEROL [Concomitant]
     Active Substance: CHOLECALCIFEROL
     Indication: Prophylaxis
     Route: 048
     Dates: start: 2015, end: 20210907
  12. POTASSIUM CHLORIDE [Concomitant]
     Active Substance: POTASSIUM CHLORIDE
     Indication: Hypokalaemia
     Route: 048
     Dates: start: 20210310, end: 20210317
  13. METOCLOPRAMIDE [Concomitant]
     Active Substance: METOCLOPRAMIDE
     Indication: Nausea
     Route: 048
     Dates: start: 20200910, end: 20210907

REACTIONS (2)
  - Pericardial effusion [Recovered/Resolved]
  - Cardiac failure [Recovered/Resolved]

NARRATIVE: CASE EVENT DATE: 20210224
